FAERS Safety Report 21807051 (Version 2)
Quarter: 2023Q1

REPORT INFORMATION
  Report Type: Report from Study
  Country: US (occurrence: US)
  Receive Date: 20230102
  Receipt Date: 20230111
  Transmission Date: 20230418
  Serious: Yes (Life-Threatening, Other)
  Sender: FDA-Public Use
  Company Number: US-009507513-2212USA011272

PATIENT
  Age: 66 Year
  Sex: Female

DRUGS (6)
  1. PEMBROLIZUMAB [Suspect]
     Active Substance: PEMBROLIZUMAB
     Dosage: 200 MILLIGRAMS, IV, EVERY 21 DAYS. STRENGTH: 50MILLIGRAMS
     Route: 042
     Dates: start: 202210
  2. PEMBROLIZUMAB [Suspect]
     Active Substance: PEMBROLIZUMAB
     Dosage: 200 MILLIGRAMS, IV, EVERY 21 DAYS, STRENGTH: 50MILLIGRAMS
     Route: 042
     Dates: start: 20221206
  3. PACLITAXEL [Suspect]
     Active Substance: PACLITAXEL
     Indication: Triple negative breast cancer
     Dosage: UNK
     Dates: start: 20221205
  4. CARBOPLATIN [Suspect]
     Active Substance: CARBOPLATIN
     Indication: Triple negative breast cancer
     Dosage: UNK
     Dates: start: 20221206, end: 20221206
  5. DIPHENHYDRAMINE HYDROCHLORIDE [Suspect]
     Active Substance: DIPHENHYDRAMINE HYDROCHLORIDE
     Indication: Premedication
     Dosage: UNK
     Dates: start: 20221206
  6. PEPCID [Suspect]
     Active Substance: FAMOTIDINE
     Indication: Premedication
     Dosage: UNK
     Dates: start: 20221206

REACTIONS (6)
  - Anaphylactic reaction [Recovered/Resolved]
  - Tremor [Recovered/Resolved]
  - Anxiety [Unknown]
  - Fatigue [Unknown]
  - Nausea [Unknown]
  - Urticaria [Unknown]

NARRATIVE: CASE EVENT DATE: 20221201
